FAERS Safety Report 9292900 (Version 1)
Quarter: 2013Q2

REPORT INFORMATION
  Report Type: Spontaneous
  Country: US (occurrence: None)
  Receive Date: 20130515
  Receipt Date: 20130515
  Transmission Date: 20140414
  Serious: Yes (Hospitalization)
  Sender: FDA-Public Use
  Company Number: None

PATIENT
  Age: 71 Year
  Sex: Female

DRUGS (3)
  1. PAROXETINE [Suspect]
     Indication: DEPRESSION
     Route: 048
     Dates: start: 20130401
  2. QUETIAPINE [Suspect]
     Indication: AGITATION
     Route: 048
     Dates: start: 20130401
  3. QUETIAPINE [Suspect]
     Indication: ANXIETY
     Route: 048
     Dates: start: 20130401

REACTIONS (3)
  - Syncope [None]
  - Fall [None]
  - Electrocardiogram QT prolonged [None]
